FAERS Safety Report 13650387 (Version 7)
Quarter: 2018Q1

REPORT INFORMATION
  Report Type: Report from Study
  Country: US (occurrence: US)
  Receive Date: 20170614
  Receipt Date: 20180315
  Transmission Date: 20180508
  Serious: Yes (Death, Life-Threatening, Hospitalization, Disabling, Other)
  Sender: FDA-Public Use
  Company Number: PHHO2017US008987

PATIENT
  Age: 65 Year
  Sex: Female
  Weight: 67.13 kg

DRUGS (8)
  1. TRAMADOL. [Suspect]
     Active Substance: TRAMADOL
     Indication: ANALGESIC THERAPY
     Dosage: 50 MG ^1TNS^ Q8 HRS
     Route: 048
     Dates: start: 20170527
  2. HYDROXYUREA. [Concomitant]
     Active Substance: HYDROXYUREA
     Indication: POLYCYTHAEMIA VERA
     Dosage: 500 MG, QD
     Route: 048
     Dates: start: 20160512
  3. METOPROLOL SUCCINATE. [Suspect]
     Active Substance: METOPROLOL SUCCINATE
     Indication: CARDIAC FAILURE
     Dosage: 12.5 MG, QHS
     Route: 048
     Dates: start: 20170427, end: 20170529
  4. NORCO [Suspect]
     Active Substance: ACETAMINOPHEN\HYDROCODONE BITARTRATE
     Indication: ANALGESIC THERAPY
     Dosage: 5-325 MG Q6 HRS
     Route: 048
     Dates: start: 20170507
  5. ENTRESTO [Suspect]
     Active Substance: SACUBITRIL\VALSARTAN
     Indication: CARDIAC FAILURE
     Dosage: LEVEL 1
     Route: 048
     Dates: start: 20170418, end: 20170530
  6. ACETAMINOPHEN. [Concomitant]
     Active Substance: ACETAMINOPHEN
     Indication: ANALGESIC THERAPY
     Dosage: 1000 MG, QID
     Route: 048
  7. TYLENOL [Concomitant]
     Active Substance: ACETAMINOPHEN
     Indication: ANALGESIC THERAPY
     Dosage: 1000 MG, QID
     Route: 048
  8. BUMEX [Suspect]
     Active Substance: BUMETANIDE
     Indication: PRODUCT USED FOR UNKNOWN INDICATION
     Dosage: UNK
     Route: 065

REACTIONS (14)
  - Cardiogenic shock [Fatal]
  - Polycythaemia vera [Fatal]
  - Cardiac failure acute [Fatal]
  - Pneumonia [Fatal]
  - Dizziness [Recovered/Resolved]
  - Fall [Recovering/Resolving]
  - Hypotension [Fatal]
  - Sepsis [Fatal]
  - Dehydration [Recovered/Resolved]
  - Acute kidney injury [Fatal]
  - Aortic stenosis [Fatal]
  - Septic shock [Fatal]
  - Asthenia [Not Recovered/Not Resolved]
  - Cardiac failure congestive [Fatal]

NARRATIVE: CASE EVENT DATE: 201704
